FAERS Safety Report 7769110-5 (Version None)
Quarter: 2011Q3

REPORT INFORMATION
  Report Type: 
  Country: None (occurrence: None)
  Receive Date: 20110922
  Receipt Date: 20110105
  Transmission Date: 20111222
  Serious: No
  Sender: FDA-Public Use
  Company Number: US-ASTRAZENECA-2011SE00619

PATIENT
  Age: 19 Year
  Sex: Male
  Weight: 127 kg

DRUGS (3)
  1. SEROQUEL [Suspect]
     Indication: BIPOLAR DISORDER
     Route: 048
     Dates: start: 20101001
  2. WELLBUTRIN [Concomitant]
     Indication: DEPRESSION
  3. SEROQUEL [Suspect]
     Route: 048
     Dates: end: 20101101

REACTIONS (2)
  - DRUG EFFECT DECREASED [None]
  - DRUG DOSE OMISSION [None]
